FAERS Safety Report 9452865 (Version 2)
Quarter: 2014Q4

REPORT INFORMATION
  Report Type: Spontaneous
  Country: JM (occurrence: JM)
  Receive Date: 20130812
  Receipt Date: 20141021
  Transmission Date: 20150529
  Serious: Yes (Death, Hospitalization)
  Sender: FDA-Public Use
  Company Number: JM-RANBAXY-2013R1-72125

PATIENT
  Age: 22 Year
  Sex: Female

DRUGS (1)
  1. CLINDAMYCIN [Suspect]
     Active Substance: CLINDAMYCIN\CLINDAMYCIN PHOSPHATE
     Indication: TOOTH EXTRACTION
     Dosage: UNK
     Route: 065

REACTIONS (11)
  - Thrombocytopenia [Unknown]
  - Pulmonary oedema [Unknown]
  - Leukopenia [Unknown]
  - Cardio-respiratory distress [Unknown]
  - Hypotension [Unknown]
  - Bacteraemia [Unknown]
  - Pseudomembranous colitis [Unknown]
  - Megacolon [Unknown]
  - Clostridium difficile infection [Unknown]
  - Death [Fatal]
  - Intestinal perforation [Unknown]
